APPROVED DRUG PRODUCT: TEMOZOLOMIDE
Active Ingredient: TEMOZOLOMIDE
Strength: 20MG
Dosage Form/Route: CAPSULE;ORAL
Application: A204159 | Product #002
Applicant: APOTEX INC
Approved: Jul 5, 2018 | RLD: No | RS: No | Type: DISCN